FAERS Safety Report 9752063 (Version 1)
Quarter: 2013Q4

REPORT INFORMATION
  Report Type: Report from Study
  Country: US (occurrence: US)
  Receive Date: 20131213
  Receipt Date: 20131213
  Transmission Date: 20140711
  Serious: Yes (Other)
  Sender: FDA-Public Use
  Company Number: US-ROCHE-1317005

PATIENT
  Sex: Male

DRUGS (1)
  1. XOLAIR [Suspect]
     Indication: PRODUCT USED FOR UNKNOWN INDICATION
     Route: 065

REACTIONS (18)
  - Urticaria [Unknown]
  - Dyspnoea [Unknown]
  - Sneezing [Unknown]
  - Rhinorrhoea [Unknown]
  - Nasal discomfort [Unknown]
  - Eye swelling [Unknown]
  - Conjunctivitis allergic [Unknown]
  - Eye pruritus [Unknown]
  - Throat irritation [Unknown]
  - Ocular hyperaemia [Unknown]
  - Anhidrosis [Unknown]
  - Nasal congestion [Unknown]
  - Pharyngeal erythema [Unknown]
  - Fatigue [Unknown]
  - Cough [Unknown]
  - Sinusitis [Unknown]
  - Infection [Unknown]
  - Nodule [Unknown]
